FAERS Safety Report 6903607-2 (Version None)
Quarter: 2010Q3

REPORT INFORMATION
  Report Type: 
  Country: None (occurrence: None)
  Receive Date: 20100803
  Receipt Date: 20081031
  Transmission Date: 20110219
  Serious: No
  Sender: FDA-Public Use
  Company Number: US-PFIZER INC-2008082640

PATIENT
  Sex: Female

DRUGS (8)
  1. LYRICA [Suspect]
     Dates: start: 20080901, end: 20080922
  2. OXYCONTIN [Concomitant]
  3. CELEXA [Concomitant]
  4. HYDROCHLOROTHIAZIDE [Concomitant]
  5. DIOVANE [Concomitant]
  6. RELAFEN [Concomitant]
  7. PRILOSEC [Concomitant]
  8. BENADRYL [Concomitant]

REACTIONS (1)
  - MYOCLONUS [None]
